FAERS Safety Report 6489114-2 (Version None)
Quarter: 2009Q4

REPORT INFORMATION
  Report Type: 
  Country: None (occurrence: None)
  Receive Date: 20091210
  Receipt Date: 20090923
  Transmission Date: 20100525
  Serious: No
  Sender: FDA-Public Use
  Company Number: US-AMGEN-KDL366086

PATIENT
  Sex: Female

DRUGS (2)
  1. ENBREL [Suspect]
     Indication: PSORIATIC ARTHROPATHY
     Route: 058
  2. ENBREL [Suspect]
     Indication: PSORIASIS

REACTIONS (6)
  - ARTHRALGIA [None]
  - BONE PAIN [None]
  - FATIGUE [None]
  - FIBROMYALGIA [None]
  - INTERVERTEBRAL DISC DEGENERATION [None]
  - SWELLING [None]
